FAERS Safety Report 6034762-7 (Version None)
Quarter: 2009Q1

REPORT INFORMATION
  Report Type: 
  Country: None (occurrence: None)
  Receive Date: 20090109
  Receipt Date: 20090109
  Transmission Date: 20090719
  Serious: No
  Sender: FDA-Public Use
  Company Number: None

PATIENT
  Age: 63 Year
  Sex: Male
  Weight: 83.9154 kg

DRUGS (3)
  1. METOPROLOL SUCCINATE [Suspect]
     Indication: HEART RATE IRREGULAR
     Dosage: 1 PER DAY
  2. METOPROLOL SUCCINATE [Suspect]
     Indication: HYPERTENSION
     Dosage: 1 PER DAY
  3. TOPROL-XL [Suspect]

REACTIONS (5)
  - DRUG INTERACTION [None]
  - PRURITUS [None]
  - SCAB [None]
  - SEBORRHOEIC DERMATITIS [None]
  - TINEA CRURIS [None]
